FAERS Safety Report 18540818 (Version 3)
Quarter: 2025Q4

REPORT INFORMATION
  Report Type: Report from Study
  Country: CA (occurrence: CA)
  Receive Date: 20201124
  Receipt Date: 20251208
  Transmission Date: 20260117
  Serious: Yes (Other)
  Sender: GLAXOSMITHKLINE
  Company Number: CA-GLAXOSMITHKLINE-CA2020AMR228465

PATIENT
  Sex: Female

DRUGS (11)
  1. ALBUTEROL SULFATE [Suspect]
     Active Substance: ALBUTEROL SULFATE
     Indication: Product used for unknown indication
     Dosage: UNK
  2. AMOXICILLIN\CLAVULANATE POTASSIUM [Suspect]
     Active Substance: AMOXICILLIN\CLAVULANATE POTASSIUM
     Indication: Product used for unknown indication
     Dosage: UNK
  3. LEVOFLOXACIN [Suspect]
     Active Substance: LEVOFLOXACIN
     Indication: Product used for unknown indication
     Dosage: UNK
  4. RUPATADINE FUMARATE [Suspect]
     Active Substance: RUPATADINE FUMARATE
     Indication: Product used for unknown indication
     Dosage: UNK
  5. PREDNISONE [Suspect]
     Active Substance: PREDNISONE
     Indication: Product used for unknown indication
     Dosage: UNK
  6. NASONEX [Suspect]
     Active Substance: MOMETASONE FUROATE
     Indication: Product used for unknown indication
     Dosage: UNK, SPRAY
  7. ZENHALE [Suspect]
     Active Substance: FORMOTEROL FUMARATE\MOMETASONE FUROATE
     Indication: Product used for unknown indication
     Dosage: UNK, AEROSOL, METERED PRODUCT USED ZENHALE SUSPECT UNKNOWN FOR UNKNOWN DOSE INDICATION
  8. ALVESCO [Suspect]
     Active Substance: CICLESONIDE
     Indication: Product used for unknown indication
     Dosage: UNK
  9. AZITHROMYCIN [Suspect]
     Active Substance: AZITHROMYCIN
     Indication: Product used for unknown indication
     Dosage: UNK
  10. CICLESONIDE [Suspect]
     Active Substance: CICLESONIDE
     Indication: Product used for unknown indication
     Dosage: UNK
  11. PANTOPRAZOLE MAGNESIUM [Suspect]
     Active Substance: PANTOPRAZOLE MAGNESIUM
     Indication: Product used for unknown indication
     Dosage: UNK

REACTIONS (15)
  - Sputum purulent [Unknown]
  - Respiratory tract infection [Unknown]
  - Paranasal sinus inflammation [Unknown]
  - Asthma [Unknown]
  - Nasal polyps [Unknown]
  - Wheezing [Unknown]
  - Dyspnoea [Unknown]
  - Cough [Unknown]
  - Productive cough [Unknown]
  - Chest discomfort [Unknown]
  - Full blood count abnormal [Unknown]
  - Obstructive airways disorder [Unknown]
  - Sinusitis [Unknown]
  - Sleep disorder due to a general medical condition [Unknown]
  - Therapeutic product effect incomplete [Unknown]
